FAERS Safety Report 20298986 (Version 1)
Quarter: 2022Q1

REPORT INFORMATION
  Report Type: Report from Study
  Country: KE (occurrence: KE)
  Receive Date: 20220105
  Receipt Date: 20220105
  Transmission Date: 20220423
  Serious: Yes (Death)
  Sender: FDA-Public Use
  Company Number: KE-NOVARTISPH-NVSC2022KE000921

PATIENT
  Age: 72 Year
  Sex: Female

DRUGS (1)
  1. SACUBITRIL\VALSARTAN [Suspect]
     Active Substance: SACUBITRIL\VALSARTAN
     Indication: Congestive cardiomyopathy
     Dosage: 50 MG, BID
     Route: 048
     Dates: start: 202104

REACTIONS (8)
  - Pneumonia [Fatal]
  - Dyspnoea [Fatal]
  - Cough [Fatal]
  - Malaise [Fatal]
  - Chest pain [Fatal]
  - Pain [Fatal]
  - Acute respiratory failure [Fatal]
  - Product use in unapproved indication [Unknown]

NARRATIVE: CASE EVENT DATE: 20210401
